FAERS Safety Report 16721080 (Version 2)
Quarter: 2019Q3

REPORT INFORMATION
  Report Type: Spontaneous
  Country: US (occurrence: US)
  Receive Date: 20190820
  Receipt Date: 20190828
  Transmission Date: 20191005
  Serious: No
  Sender: FDA-Public Use
  Company Number: US-AMGEN-USASP2019130375

PATIENT
  Age: 67 Year
  Sex: Female
  Weight: 49.89 kg

DRUGS (4)
  1. PROLIA [Suspect]
     Active Substance: DENOSUMAB
     Indication: OSTEOPOROSIS
     Dosage: 60 MILLIGRAM PER MILLILITRE, Q6MO
     Route: 058
     Dates: start: 201811
  2. LIALDA [Concomitant]
     Active Substance: MESALAMINE
     Dosage: 2.4 UNK, QD
  3. CALCIUM [Concomitant]
     Active Substance: CALCIUM
     Indication: OSTEOPOROSIS
     Dosage: 600 MILLIGRAM, QD
  4. AMLODIPINE [Concomitant]
     Active Substance: AMLODIPINE BESYLATE
     Indication: HYPERTENSION
     Dosage: 5 MILLIGRAM, QD

REACTIONS (5)
  - Hot flush [Unknown]
  - Abdominal distension [Unknown]
  - Insomnia [Unknown]
  - Gingival bleeding [Unknown]
  - Gingival pain [Unknown]

NARRATIVE: CASE EVENT DATE: 2019
